FAERS Safety Report 5706183-5 (Version None)
Quarter: 2008Q2

REPORT INFORMATION
  Report Type: 
  Country: None (occurrence: None)
  Receive Date: 20080415
  Receipt Date: 20080403
  Transmission Date: 20081010
  Serious: Yes (Other)
  Sender: FDA-Public Use
  Company Number: US-PFIZER INC-2008031604

PATIENT
  Sex: Male
  Weight: 81.6 kg

DRUGS (3)
  1. CHANTIX [Suspect]
     Indication: SMOKING CESSATION THERAPY
     Route: 048
     Dates: start: 20080301, end: 20080313
  2. LOVENOX [Concomitant]
     Indication: HIP ARTHROPLASTY
  3. ZOCOR [Concomitant]

REACTIONS (1)
  - HIP ARTHROPLASTY [None]
